FAERS Safety Report 9022627 (Version 2)
Quarter: 2014Q2

REPORT INFORMATION
  Report Type: Spontaneous
  Country: TR (occurrence: TR)
  Receive Date: 20130120
  Receipt Date: 20140530
  Transmission Date: 20141212
  Serious: Yes (Other)
  Sender: FDA-Public Use
  Company Number: PHHY2013TR004044

PATIENT
  Age: 25 Year
  Sex: Female

DRUGS (1)
  1. PAROXETINE [Suspect]
     Indication: GENERALISED ANXIETY DISORDER
     Dosage: 20 MG, QD

REACTIONS (1)
  - Nicotine dependence [Recovered/Resolved]
